FAERS Safety Report 5385055-2 (Version None)
Quarter: 2007Q3

REPORT INFORMATION
  Report Type: 
  Country: None (occurrence: None)
  Receive Date: 20070712
  Receipt Date: 20070703
  Transmission Date: 20080115
  Serious: Yes (Other)
  Sender: FDA-Public Use
  Company Number: PHBS2007FR11372

PATIENT
  Sex: Female

DRUGS (1)
  1. BROMOCRIPTINE MESYLATE [Suspect]

REACTIONS (2)
  - ANGIOPATHY [None]
  - HEADACHE [None]
